FAERS Safety Report 9473412 (Version 2)
Quarter: 2013Q3

REPORT INFORMATION
  Report Type: Spontaneous
  Country: US (occurrence: US)
  Receive Date: 20130823
  Receipt Date: 20130823
  Transmission Date: 20140515
  Serious: No
  Sender: FDA-Public Use
  Company Number: US-BRISTOL-MYERS SQUIBB COMPANY-18952796

PATIENT
  Age: 64 Year
  Sex: Male

DRUGS (3)
  1. SPRYCEL [Suspect]
     Dates: start: 20130524
  2. PROGRAF [Concomitant]
  3. CELLCEPT [Concomitant]

REACTIONS (12)
  - Diarrhoea [Unknown]
  - Abdominal distension [Unknown]
  - Decreased appetite [Unknown]
  - Pain in extremity [Unknown]
  - Fatigue [Recovering/Resolving]
  - Nausea [Unknown]
  - Muscular weakness [Unknown]
  - Somnolence [Unknown]
  - Local swelling [Unknown]
  - Cough [Unknown]
  - Myalgia [Unknown]
  - Hypotension [Unknown]
